FAERS Safety Report 21236562 (Version 2)
Quarter: 2022Q3

REPORT INFORMATION
  Report Type: Other
  Country: US (occurrence: None)
  Receive Date: 20220822
  Receipt Date: 20220823
  Transmission Date: 20221026
  Serious: Yes (Death)
  Sender: FDA-Public Use
  Company Number: US-ROCHE-3164029

PATIENT
  Sex: Male

DRUGS (5)
  1. TECENTRIQ [Suspect]
     Active Substance: ATEZOLIZUMAB
     Indication: Malignant neoplasm of unknown primary site
     Dosage: INFUSE 1200MG INTRAVENOUSLY EVERY 3 WEEK(S)
     Route: 042
  2. TECENTRIQ [Suspect]
     Active Substance: ATEZOLIZUMAB
     Indication: Metastases to liver
  3. TECENTRIQ [Suspect]
     Active Substance: ATEZOLIZUMAB
     Indication: Hepatic cancer
  4. CARBOPLATIN [Concomitant]
     Active Substance: CARBOPLATIN
  5. ETOPOSIDE [Concomitant]
     Active Substance: ETOPOSIDE

REACTIONS (1)
  - Death [Fatal]
